FAERS Safety Report 20360598 (Version 1)
Quarter: 2022Q1

REPORT INFORMATION
  Report Type: Spontaneous
  Country: US (occurrence: US)
  Receive Date: 20220121
  Receipt Date: 20220121
  Transmission Date: 20220424
  Serious: Yes (Life-Threatening, Other)
  Sender: FDA-Public Use
  Company Number: US-AUROBINDO-AUR-APL-2021-004917

PATIENT
  Age: 50 Year
  Sex: Female

DRUGS (10)
  1. CLOZAPINE [Suspect]
     Active Substance: CLOZAPINE
     Indication: Psychotic disorder
     Dosage: 100 MILLIGRAM, DAILY
     Route: 048
  2. CLOZAPINE [Suspect]
     Active Substance: CLOZAPINE
     Indication: Schizophrenia
  3. CLOZAPINE [Suspect]
     Active Substance: CLOZAPINE
     Indication: Psychotic disorder
     Dosage: 200 MILLIGRAM, DAILY
     Route: 048
  4. CLOZAPINE [Suspect]
     Active Substance: CLOZAPINE
     Indication: Schizophrenia
  5. CLOZAPINE [Suspect]
     Active Substance: CLOZAPINE
     Indication: Psychotic disorder
     Dosage: 50 MILLIGRAM, DAILY
     Route: 048
  6. CLOZAPINE [Suspect]
     Active Substance: CLOZAPINE
     Indication: Schizophrenia
  7. TRILEPTAL [Concomitant]
     Active Substance: OXCARBAZEPINE
     Indication: Product used for unknown indication
     Dosage: 300 MILLIGRAM, 3 TIMES A DAY
     Route: 065
  8. LEXAPRO [Concomitant]
     Active Substance: ESCITALOPRAM OXALATE
     Indication: Product used for unknown indication
     Dosage: 20 MILLIGRAM, EVERY NIGHT
     Route: 048
  9. INVEGA [Concomitant]
     Active Substance: PALIPERIDONE
     Indication: Product used for unknown indication
     Dosage: 9 MILLIGRAM, AT BED TIME
     Route: 048
  10. KLONOPIN [Concomitant]
     Active Substance: CLONAZEPAM
     Indication: Anxiety
     Dosage: 0.5 MILLIGRAM, TWO TIMES A DAY
     Route: 065

REACTIONS (1)
  - Neutropenia [Recovered/Resolved]

NARRATIVE: CASE EVENT DATE: 20201224
